FAERS Safety Report 9631678 (Version 1)
Quarter: 2013Q4

REPORT INFORMATION
  Report Type: Spontaneous
  Country: US (occurrence: US)
  Receive Date: 20131018
  Receipt Date: 20131018
  Transmission Date: 20140711
  Serious: Yes (Other)
  Sender: FDA-Public Use
  Company Number: US-PFIZER INC-2013297592

PATIENT
  Age: 53 Year
  Sex: Female

DRUGS (1)
  1. NORVASC [Suspect]
     Dosage: UNK
     Dates: start: 20130829

REACTIONS (4)
  - Blood pressure abnormal [Unknown]
  - Insomnia [Unknown]
  - Speech disorder [Unknown]
  - Movement disorder [Unknown]
